FAERS Safety Report 25909632 (Version 1)
Quarter: 2025Q4

REPORT INFORMATION
  Report Type: Spontaneous
  Country: ZA (occurrence: ZA)
  Receive Date: 20251011
  Receipt Date: 20251011
  Transmission Date: 20260118
  Serious: Yes (Life-Threatening, Other)
  Sender: DR REDDYS
  Company Number: ZA-RDY-ZAF/2025/10/015097

PATIENT
  Age: 67 Year
  Sex: Male

DRUGS (4)
  1. CLOPIDOGREL [Suspect]
     Active Substance: CLOPIDOGREL BISULFATE
     Indication: Antiplatelet therapy
     Dosage: CLOPIDOGREL 300 MG
  2. ENOXAPARIN [Suspect]
     Active Substance: ENOXAPARIN
     Indication: Anticoagulant therapy
     Dosage: SUBCUTANEOUS ENOXAPARIN OF 80 MG
     Route: 058
  3. ASPIRIN [Suspect]
     Active Substance: ASPIRIN
     Indication: Anticoagulant therapy
     Dosage: ORAL ASPIRIN 300 MG
     Route: 048
  4. ALTEPLASE [Concomitant]
     Active Substance: ALTEPLASE
     Indication: Thrombolysis

REACTIONS (3)
  - Haemorrhage intracranial [Unknown]
  - Hemiplegia [Unknown]
  - Aphasia [Unknown]
